FAERS Safety Report 11201728 (Version 3)
Quarter: 2015Q3

REPORT INFORMATION
  Report Type: Spontaneous
  Country: JP (occurrence: JP)
  Receive Date: 20150619
  Receipt Date: 20150715
  Transmission Date: 20151125
  Serious: Yes (Hospitalization)
  Sender: FDA-Public Use
  Company Number: JP-JNJFOC-20150610207

PATIENT
  Age: 75 Year
  Sex: Female

DRUGS (9)
  1. FAMOTIDINE. [Concomitant]
     Active Substance: FAMOTIDINE
     Route: 048
  2. INVEGA [Suspect]
     Active Substance: PALIPERIDONE
     Indication: SCHIZOPHRENIA
     Route: 048
     Dates: end: 20150602
  3. INVEGA [Suspect]
     Active Substance: PALIPERIDONE
     Indication: SCHIZOPHRENIA
     Route: 048
     Dates: start: 20150612
  4. RISPERIDONE. [Concomitant]
     Active Substance: RISPERIDONE
     Indication: SCHIZOPHRENIA
     Route: 048
     Dates: start: 20150603, end: 20150611
  5. CARVEDILOL. [Concomitant]
     Active Substance: CARVEDILOL
     Route: 048
  6. AMARYL [Concomitant]
     Active Substance: GLIMEPIRIDE
     Route: 048
  7. GLACTIV [Concomitant]
     Active Substance: SITAGLIPTIN
     Route: 048
  8. SOLANAX [Concomitant]
     Active Substance: ALPRAZOLAM
     Route: 048
  9. LIMAPROST ALFADEX [Concomitant]
     Active Substance: LIMAPROST
     Route: 048

REACTIONS (2)
  - Fracture [Recovering/Resolving]
  - Fall [Unknown]
